FAERS Safety Report 6749092-5 (Version None)
Quarter: 2010Q2

REPORT INFORMATION
  Report Type: 
  Country: None (occurrence: None)
  Receive Date: 20100601
  Receipt Date: 20100525
  Transmission Date: 20101027
  Serious: Yes (Other)
  Sender: FDA-Public Use
  Company Number: CHPA2010US09018

PATIENT
  Age: 50 Year
  Sex: Female
  Weight: 81.633 kg

DRUGS (1)
  1. VOLTAREN [Suspect]
     Indication: BACK PAIN
     Dosage: 2 G, ONCE/SINGLE
     Route: 061
     Dates: start: 20100505, end: 20100505

REACTIONS (9)
  - AMNESIA [None]
  - CHEST PAIN [None]
  - DRUG ADMINISTERED AT INAPPROPRIATE SITE [None]
  - HALLUCINATION [None]
  - HEART RATE INCREASED [None]
  - HYPERSENSITIVITY [None]
  - OFF LABEL USE [None]
  - PALPITATIONS [None]
  - TACHYCARDIA [None]
